FAERS Safety Report 4912856-4 (Version None)
Quarter: 2006Q1

REPORT INFORMATION
  Report Type: 
  Country: None (occurrence: None)
  Receive Date: 20060210
  Receipt Date: 20060203
  Transmission Date: 20060701
  Serious: Yes (Hospitalization)
  Sender: FDA-Public Use
  Company Number: B0401484A

PATIENT
  Age: 52 Year
  Sex: Male
  Weight: 99.7913 kg

DRUGS (10)
  1. CISATRACURIUM BESYLATE INJECTION (CISATRACURIUM BESYLATE) [Suspect]
     Indication: GENERAL ANAESTHESIA
     Dosage: INTRAVENOUS
     Route: 042
     Dates: start: 20050623, end: 20050623
  2. CEFAZOLIN [Suspect]
     Indication: ANTIBIOTIC PROPHYLAXIS
     Dosage: INTRAVENOUS
     Route: 042
     Dates: start: 20050623, end: 20050623
  3. DROPERIDOL [Suspect]
     Dates: start: 20050623, end: 20050623
  4. APROTININ INJECTION (APROTININ) [Suspect]
     Dosage: IINTRAVENOUS
     Route: 042
     Dates: start: 20050623, end: 20050623
  5. MIDAZOLAM HCL [Suspect]
     Indication: GENERAL ANAESTHESIA
     Dates: start: 20050623, end: 20050623
  6. PROPOFOL [Suspect]
     Indication: GENERAL ANAESTHESIA
     Dosage: INTRAVENOUS
     Route: 042
     Dates: start: 20050623, end: 20050623
  7. SUFENTANIL CITRATE INJECTION (SUFENTANIL CITRATE) [Suspect]
     Indication: NERVE BLOCK
     Dosage: INTRAVENOUS
     Route: 042
     Dates: start: 20050623, end: 20050623
  8. ACETAMINOPHEN [Suspect]
     Indication: NERVE BLOCK
     Dates: start: 20050623
  9. CLONIDINE HCL [Suspect]
     Indication: NERVE BLOCK
     Dates: start: 20050623
  10. BUPIVACAINE [Suspect]
     Indication: ANAESTHESIA
     Dosage: INTRATHECAL
     Route: 037
     Dates: start: 20050623

REACTIONS (5)
  - HISTAMINE LEVEL INCREASED [None]
  - LEUKOTRIENE INCREASED [None]
  - OEDEMA [None]
  - TRYPTASE INCREASED [None]
  - URTICARIA [None]
